FAERS Safety Report 13586040 (Version 3)
Quarter: 2017Q4

REPORT INFORMATION
  Report Type: Spontaneous
  Country: US (occurrence: US)
  Receive Date: 20170526
  Receipt Date: 20171005
  Transmission Date: 20180320
  Serious: No
  Sender: FDA-Public Use
  Company Number: US-INDIVIOR LIMITED-INDV-102088-2017

PATIENT
  Sex: Female

DRUGS (7)
  1. ZUBSOLV [Suspect]
     Active Substance: BUPRENORPHINE HYDROCHLORIDE\NALOXONE HYDROCHLORIDE
     Dosage: UNK, DOSE DECREASED
     Route: 060
     Dates: start: 20170518
  2. SUBOXONE [Suspect]
     Active Substance: BUPRENORPHINE HYDROCHLORIDE\NALOXONE HYDROCHLORIDE
     Dosage: CUTTING IT INTO 2 MG
     Route: 065
     Dates: start: 2017, end: 201706
  3. ZUBSOLV [Suspect]
     Active Substance: BUPRENORPHINE HYDROCHLORIDE\NALOXONE HYDROCHLORIDE
     Indication: DRUG USE DISORDER
     Dosage: UNK
     Route: 060
     Dates: start: 201705, end: 20170517
  4. SUBOXONE [Suspect]
     Active Substance: BUPRENORPHINE HYDROCHLORIDE\NALOXONE HYDROCHLORIDE
     Dosage: CUTTING IT INTO 4 MG, DAILY
     Route: 065
     Dates: start: 2017, end: 2017
  5. SUBOXONE [Suspect]
     Active Substance: BUPRENORPHINE HYDROCHLORIDE\NALOXONE HYDROCHLORIDE
     Dosage: UNK, WEANED OFF
     Route: 060
     Dates: end: 201612
  6. SUBOXONE [Suspect]
     Active Substance: BUPRENORPHINE HYDROCHLORIDE\NALOXONE HYDROCHLORIDE
     Indication: DRUG USE DISORDER
     Dosage: UNK
     Route: 065
     Dates: start: 201704, end: 2017
  7. SUBOXONE [Suspect]
     Active Substance: BUPRENORPHINE HYDROCHLORIDE\NALOXONE HYDROCHLORIDE
     Indication: DRUG USE DISORDER
     Dosage: UNK
     Route: 060
     Dates: start: 2012

REACTIONS (11)
  - Oedema peripheral [Recovered/Resolved]
  - Dizziness postural [Not Recovered/Not Resolved]
  - Drug dependence [Not Recovered/Not Resolved]
  - Back pain [Not Recovered/Not Resolved]
  - Euphoric mood [Unknown]
  - Product preparation error [Recovered/Resolved]
  - Pain in extremity [Not Recovered/Not Resolved]
  - Intentional underdose [Recovered/Resolved]
  - Drug intolerance [Unknown]
  - Malaise [Recovered/Resolved]
  - Pain [Not Recovered/Not Resolved]

NARRATIVE: CASE EVENT DATE: 2012
